FAERS Safety Report 17514617 (Version 1)
Quarter: 2020Q1

REPORT INFORMATION
  Report Type: Spontaneous
  Country: US (occurrence: US)
  Receive Date: 20200309
  Receipt Date: 20200309
  Transmission Date: 20200409
  Serious: Yes (Hospitalization, Other)
  Sender: FDA-Public Use
  Company Number: US-GLAND PHARMA LIMITED-2081391

PATIENT
  Age: 58 Year
  Sex: Female

DRUGS (4)
  1. DIPHENHYDRAMINE. [Suspect]
     Active Substance: DIPHENHYDRAMINE
  2. MIDAZOLAM HYDROCHLORIDE. [Suspect]
     Active Substance: MIDAZOLAM HYDROCHLORIDE
     Indication: SEDATION
  3. LIDOCAINE. [Suspect]
     Active Substance: LIDOCAINE
     Route: 061
  4. FENTANYL. [Suspect]
     Active Substance: FENTANYL

REACTIONS (6)
  - Generalised tonic-clonic seizure [Recovered/Resolved]
  - Pulmonary oedema [Unknown]
  - Shock [Unknown]
  - Oliguria [Unknown]
  - Respiratory failure [Recovered/Resolved]
  - Pulseless electrical activity [Recovered/Resolved]
